FAERS Safety Report 7513017-5 (Version None)
Quarter: 2011Q2

REPORT INFORMATION
  Report Type: 
  Country: None (occurrence: None)
  Receive Date: 20110531
  Receipt Date: 20110520
  Transmission Date: 20111010
  Serious: Yes (Other)
  Sender: FDA-Public Use
  Company Number: JP-ASTELLAS-2011JP003134

PATIENT
  Sex: Male
  Weight: 50 kg

DRUGS (11)
  1. PROGRAF [Suspect]
     Indication: GRAFT VERSUS HOST DISEASE
     Dosage: UNK
     Route: 041
     Dates: start: 20100316, end: 20100512
  2. PROGRAF [Suspect]
     Dosage: 1.2 MG, BID
     Route: 048
     Dates: start: 20100513
  3. PREDNISOLONE [Concomitant]
     Indication: GRAFT VERSUS HOST DISEASE
     Dosage: 5 MG, BID
     Route: 048
     Dates: start: 20100424
  4. CEFAZOLIN SODIUM [Concomitant]
     Indication: GRAFT VERSUS HOST DISEASE
     Dosage: 100 MG, TID
     Route: 048
  5. FUNGIZONE [Concomitant]
     Dosage: 20 ML, TID
     Route: 048
  6. URSO 250 [Concomitant]
     Indication: GRAFT VERSUS HOST DISEASE
     Dosage: 100 MG, TID
     Route: 048
     Dates: start: 20100303
  7. DIFLUCAN [Concomitant]
     Dosage: 100 MG, UID/QD
     Route: 048
  8. METHOTREXATE [Concomitant]
     Indication: PROPHYLAXIS AGAINST GRAFT VERSUS HOST DISEASE
     Route: 065
  9. OMEPRAZOLE [Concomitant]
     Indication: GASTRITIS
     Dosage: 10 MG, UID/QD
     Route: 048
  10. LENDORMIN [Concomitant]
     Indication: INSOMNIA
     Dosage: 0.25 MG, UID/QD
     Route: 048
  11. STEROID [Concomitant]
     Indication: ACUTE GRAFT VERSUS HOST DISEASE IN INTESTINE
     Dosage: UNK
     Route: 065
     Dates: start: 20100414

REACTIONS (3)
  - DRUG INEFFECTIVE [None]
  - GRAFT VERSUS HOST DISEASE [None]
  - ORAL HERPES [None]
